FAERS Safety Report 22208853 (Version 1)
Quarter: 2023Q2

REPORT INFORMATION
  Report Type: Spontaneous
  Country: HR (occurrence: HR)
  Receive Date: 20230413
  Receipt Date: 20230413
  Transmission Date: 20230722
  Serious: Yes (Death)
  Sender: FDA-Public Use
  Company Number: None

PATIENT
  Age: 81 Year
  Sex: Female

DRUGS (5)
  1. QUETIAPINE [Suspect]
     Active Substance: QUETIAPINE
     Indication: Product used for unknown indication
     Dosage: THE STRENGTH OF THE MEDICINE QUETIAPINE 25 MG 1,1,2 , DOSAGE 25
     Route: 065
     Dates: start: 20221230
  2. ACETAMINOPHEN [Suspect]
     Active Substance: ACETAMINOPHEN
     Indication: Product used for unknown indication
     Dosage: 1G I.V
     Route: 042
  3. DOXYCYCLINE [Suspect]
     Active Substance: DOXYCYCLINE
     Indication: Product used for unknown indication
     Dosage: DRUG STRENGTH, 100, DOSAGE 2X100
     Route: 065
  4. LORAZEPAM [Suspect]
     Active Substance: LORAZEPAM
     Indication: Product used for unknown indication
     Dosage: DRUG STRENGTH 1 MG 2X1, DOSAGE 2X1
     Route: 065
  5. SULPIRIDE [Suspect]
     Active Substance: SULPIRIDE
     Indication: Product used for unknown indication
     Dosage: 50 MILLIGRAM DAILY; DRUG STRENGTH 50MG, DOSAGE 1,0,0
     Route: 065

REACTIONS (9)
  - Amnesia [Fatal]
  - Tachycardia [Fatal]
  - Pneumonia [Fatal]
  - Vomiting [Fatal]
  - Cardiac failure [Fatal]
  - Diarrhoea [Fatal]
  - Cystitis [Fatal]
  - Pyrexia [Fatal]
  - Speech disorder [Fatal]

NARRATIVE: CASE EVENT DATE: 20221130
